FAERS Safety Report 7259061-7 (Version None)
Quarter: 2011Q1

REPORT INFORMATION
  Report Type: 
  Country: None (occurrence: None)
  Receive Date: 20110129
  Receipt Date: 20100811
  Transmission Date: 20110831
  Serious: No
  Sender: FDA-Public Use
  Company Number: US-ABBOTT-10P-163-0663431-00

PATIENT
  Age: 57 Year
  Sex: Female

DRUGS (5)
  1. HUMIRA [Suspect]
     Indication: PSORIATIC ARTHROPATHY
     Dates: start: 20100701
  2. LEVOTHYROXINE SODIUM [Concomitant]
     Indication: PRODUCT USED FOR UNKNOWN INDICATION
     Route: 048
  3. SKIN CREAM FOR PSORIASIS [Concomitant]
     Indication: PSORIASIS
  4. PULMICORT [Concomitant]
     Indication: PRODUCT USED FOR UNKNOWN INDICATION
  5. ESTROGEN PATCH [Concomitant]
     Indication: PRODUCT USED FOR UNKNOWN INDICATION

REACTIONS (2)
  - INFLUENZA LIKE ILLNESS [None]
  - SKIN PLAQUE [None]
